FAERS Safety Report 26152850 (Version 1)
Quarter: 2025Q4

REPORT INFORMATION
  Report Type: Spontaneous
  Country: SG (occurrence: SG)
  Receive Date: 20251214
  Receipt Date: 20251214
  Transmission Date: 20260117
  Serious: Yes (Hospitalization, Other)
  Sender: SANOFI AVENTIS
  Company Number: SG-SANOFI-02745499

PATIENT
  Age: 17 Year
  Sex: Female

DRUGS (1)
  1. DUPIXENT [Suspect]
     Active Substance: DUPILUMAB
     Indication: Eczema
     Dosage: UNK

REACTIONS (8)
  - Syncope [Unknown]
  - Respiratory syncytial virus infection [Unknown]
  - Chest pain [Unknown]
  - Chest discomfort [Unknown]
  - Headache [Unknown]
  - Back pain [Unknown]
  - Eczema [Unknown]
  - Arthralgia [Unknown]

NARRATIVE: CASE EVENT DATE: 20251007
